FAERS Safety Report 26083298 (Version 1)
Quarter: 2025Q4

REPORT INFORMATION
  Report Type: Spontaneous
  Country: EU (occurrence: EU)
  Receive Date: 20251124
  Receipt Date: 20251124
  Transmission Date: 20260117
  Serious: Yes (Life-Threatening, Hospitalization)
  Sender: MYLAN
  Company Number: None

PATIENT
  Age: 60 Year
  Sex: Female
  Weight: 58 kg

DRUGS (24)
  1. DEXAMETHASONE [Suspect]
     Active Substance: DEXAMETHASONE
     Indication: General anaesthesia
     Dosage: 8 MILLIGRAM, TOTAL
     Dates: start: 20251105, end: 20251105
  2. DEXAMETHASONE [Suspect]
     Active Substance: DEXAMETHASONE
     Dosage: 8 MILLIGRAM, TOTAL
     Route: 042
     Dates: start: 20251105, end: 20251105
  3. DEXAMETHASONE [Suspect]
     Active Substance: DEXAMETHASONE
     Dosage: 8 MILLIGRAM, TOTAL
     Route: 042
     Dates: start: 20251105, end: 20251105
  4. DEXAMETHASONE [Suspect]
     Active Substance: DEXAMETHASONE
     Dosage: 8 MILLIGRAM, TOTAL
     Dates: start: 20251105, end: 20251105
  5. PROPOFOL [Suspect]
     Active Substance: PROPOFOL
     Indication: General anaesthesia
     Dosage: 120 MILLIGRAM, TOTAL
     Dates: start: 20251105, end: 20251105
  6. PROPOFOL [Suspect]
     Active Substance: PROPOFOL
     Dosage: 120 MILLIGRAM, TOTAL
     Route: 042
     Dates: start: 20251105, end: 20251105
  7. PROPOFOL [Suspect]
     Active Substance: PROPOFOL
     Dosage: 120 MILLIGRAM, TOTAL
     Route: 042
     Dates: start: 20251105, end: 20251105
  8. PROPOFOL [Suspect]
     Active Substance: PROPOFOL
     Dosage: 120 MILLIGRAM, TOTAL
     Dates: start: 20251105, end: 20251105
  9. AUGMENTIN [Suspect]
     Active Substance: AMOXICILLIN\CLAVULANATE POTASSIUM
     Indication: Antibiotic prophylaxis
     Dosage: 2 GRAM, TOTAL, 1 GRAM /100 MILLIGRAM
     Dates: start: 20251105, end: 20251105
  10. AUGMENTIN [Suspect]
     Active Substance: AMOXICILLIN\CLAVULANATE POTASSIUM
     Dosage: 2 GRAM, TOTAL, 1 GRAM /100 MILLIGRAM
     Route: 042
     Dates: start: 20251105, end: 20251105
  11. AUGMENTIN [Suspect]
     Active Substance: AMOXICILLIN\CLAVULANATE POTASSIUM
     Dosage: 2 GRAM, TOTAL, 1 GRAM /100 MILLIGRAM
     Route: 042
     Dates: start: 20251105, end: 20251105
  12. AUGMENTIN [Suspect]
     Active Substance: AMOXICILLIN\CLAVULANATE POTASSIUM
     Dosage: 2 GRAM, TOTAL, 1 GRAM /100 MILLIGRAM
     Dates: start: 20251105, end: 20251105
  13. ATRACURIUM [Suspect]
     Active Substance: ATRACURIUM
     Indication: General anaesthesia
     Dosage: 30 MILLIGRAM, TOTAL
     Dates: start: 20251105, end: 20251105
  14. ATRACURIUM [Suspect]
     Active Substance: ATRACURIUM
     Dosage: 30 MILLIGRAM, TOTAL
     Route: 042
     Dates: start: 20251105, end: 20251105
  15. ATRACURIUM [Suspect]
     Active Substance: ATRACURIUM
     Dosage: 30 MILLIGRAM, TOTAL
     Route: 042
     Dates: start: 20251105, end: 20251105
  16. ATRACURIUM [Suspect]
     Active Substance: ATRACURIUM
     Dosage: 30 MILLIGRAM, TOTAL
     Dates: start: 20251105, end: 20251105
  17. KETAMINE [Suspect]
     Active Substance: KETAMINE
     Indication: General anaesthesia
     Dosage: 20 MILLIGRAM, TOTAL
     Dates: start: 20251105, end: 20251105
  18. KETAMINE [Suspect]
     Active Substance: KETAMINE
     Dosage: 20 MILLIGRAM, TOTAL
     Route: 042
     Dates: start: 20251105, end: 20251105
  19. KETAMINE [Suspect]
     Active Substance: KETAMINE
     Dosage: 20 MILLIGRAM, TOTAL
     Route: 042
     Dates: start: 20251105, end: 20251105
  20. KETAMINE [Suspect]
     Active Substance: KETAMINE
     Dosage: 20 MILLIGRAM, TOTAL
     Dates: start: 20251105, end: 20251105
  21. SUFENTANIL [Concomitant]
     Active Substance: SUFENTANIL
     Indication: General anaesthesia
     Dosage: 12.5 MILLIGRAM, TOTAL
     Dates: start: 20251105, end: 20251105
  22. SUFENTANIL [Concomitant]
     Active Substance: SUFENTANIL
     Dosage: 12.5 MILLIGRAM, TOTAL
     Route: 042
     Dates: start: 20251105, end: 20251105
  23. SUFENTANIL [Concomitant]
     Active Substance: SUFENTANIL
     Dosage: 12.5 MILLIGRAM, TOTAL
     Route: 042
     Dates: start: 20251105, end: 20251105
  24. SUFENTANIL [Concomitant]
     Active Substance: SUFENTANIL
     Dosage: 12.5 MILLIGRAM, TOTAL
     Dates: start: 20251105, end: 20251105

REACTIONS (1)
  - Anaphylactic shock [Recovering/Resolving]

NARRATIVE: CASE EVENT DATE: 20251105
